FAERS Safety Report 15264761 (Version 3)
Quarter: 2018Q3

REPORT INFORMATION
  Report Type: Spontaneous
  Country: US (occurrence: US)
  Receive Date: 20180810
  Receipt Date: 20180927
  Transmission Date: 20181010
  Serious: No
  Sender: FDA-Public Use
  Company Number: US-PFIZER INC-2018320242

PATIENT
  Age: 68 Year
  Sex: Female
  Weight: 127 kg

DRUGS (27)
  1. LANTUS [Concomitant]
     Active Substance: INSULIN GLARGINE
     Indication: TYPE 2 DIABETES MELLITUS
     Dosage: UNK, 1X/DAY (35?37 UNITS AT HS ? DAYS, 3 MONT, AT BED?TIME ? DAYS, 3 MONTHS/TAKE 42 UNITS AT HS)
  2. IMDUR [Concomitant]
     Active Substance: ISOSORBIDE MONONITRATE
     Dosage: 60 MG, DAILY (60 MG 2 TABLET ER 24HR DAILY EVERY MORNING)
  3. LIDOCAINE. [Concomitant]
     Active Substance: LIDOCAINE
     Indication: OROPHARYNGEAL PAIN
     Dosage: UNK (2% 15ML SOLUTION EVERY 3 HOURS MAX )
  4. ADVAIR HFA [Concomitant]
     Active Substance: FLUTICASONE PROPIONATE\SALMETEROL XINAFOATE
     Indication: DYSPNOEA
     Dosage: UNK UNK, 2X/DAY (250?50MCG/DOSE 1 PUFF AEROSOL POWDER, BREATH ACTIVATED TWICE DAILY)
  5. TRAZODONE HYDROCHLORIDE. [Concomitant]
     Active Substance: TRAZODONE HYDROCHLORIDE
     Dosage: 150 MG, 1X/DAY (3 TABLET AT BEDTIME 90 DAYS)
  6. PLAVIX [Concomitant]
     Active Substance: CLOPIDOGREL BISULFATE
     Dosage: 75 MG, DAILY (1 TABLET DAILY 90 DAYS)
  7. BUSPIRONE HCL [Concomitant]
     Active Substance: BUSPIRONE HYDROCHLORIDE
     Dosage: 15 MG, 2X/DAY (1 TABLET TWICE DAILY 90 DAYS)
  8. JANUVIA [Concomitant]
     Active Substance: SITAGLIPTIN PHOSPHATE
     Indication: HYPOGLYCAEMIA
     Dosage: 100 MG, DAILY (1 TABLET DAILY 90 DAYS)
  9. ALBUTEROL SULFATE. [Concomitant]
     Active Substance: ALBUTEROL SULFATE
     Dosage: UNK UNK, AS NEEDED ((2 .5 MG/3ML) 0.083% 1 NEBULIZE SOLUTION EVERY 6 HOURS PRN )
  10. LYRICA [Suspect]
     Active Substance: PREGABALIN
     Dosage: 50 MG, 3X/DAY (1 CAPSULE 3 TIMES A DAY 90 DAYS)
  11. PRISTIQ EXTENDED?RELEASE [Concomitant]
     Active Substance: DESVENLAFAXINE SUCCINATE
     Dosage: 100 MG, 1X/DAY (1 TABLET ER 24HR DAILY EVERY MORNING)
  12. ISOSORBIDE MONONITRATE. [Concomitant]
     Active Substance: ISOSORBIDE MONONITRATE
     Dosage: 30 MG, DAILY (1 TABLET ER 24HR DAILY)
  13. GLIPIZIDE. [Concomitant]
     Active Substance: GLIPIZIDE
     Dosage: 10 MG, DAILY (1 TABLET DAILY)
  14. AMLODIPINE BESYLATE. [Concomitant]
     Active Substance: AMLODIPINE BESYLATE
     Dosage: 10 MG, DAILY (1 TABLET DAILY ? DAYS, 90)
  15. PROVENTIL HFA [SALBUTAMOL SULFATE] [Concomitant]
     Indication: DYSPNOEA
     Dosage: UNK UNK, AS NEEDED (108 (90 BASE) MCG/ACT 2 PUFFS AEROSOL SOLN. 4 TIMES A DAY PRN )
  16. HUMALOG [Concomitant]
     Active Substance: INSULIN LISPRO
     Dosage: UNK [EVERY 6 HOURS BEFORE MEAL ? DAYS]
  17. VENTOLIN HFA [Concomitant]
     Active Substance: ALBUTEROL SULFATE
     Indication: DYSPNOEA
     Dosage: UNK, AS NEEDED [TAKE 2 PUFFS EVERY 4?6 HOURS AS NECESSARY]
  18. LYRICA [Suspect]
     Active Substance: PREGABALIN
     Indication: BACK PAIN
     Dosage: 25 MG, 3X/DAY
     Route: 048
  19. LYRICA [Suspect]
     Active Substance: PREGABALIN
     Indication: DIABETIC NEUROPATHY
     Dosage: 50 MG, 3X/DAY
     Route: 048
     Dates: start: 2018
  20. IMDUR [Concomitant]
     Active Substance: ISOSORBIDE MONONITRATE
     Dosage: 30 MG, 1X/DAY(30 MG QD)
  21. NEURONTIN [Suspect]
     Active Substance: GABAPENTIN
     Indication: BACK PAIN
     Dosage: UNK
  22. TYLENOL [Concomitant]
     Active Substance: ACETAMINOPHEN
     Dosage: UNK UNK, AS NEEDED (1?2 TABLET Q 4?6 HRS PRN ? DAYS, 60)/1?2 Q 4?6 HRS PRN
  23. NITROSTAT [Concomitant]
     Active Substance: NITROGLYCERIN
     Indication: CHEST PAIN
     Dosage: 0.4 MG, UNK (1 TAB UNDER TONGUE FOR CHEST PAIN EVERY 5 MINUTES. MAXIMUM OF 3 DOSES)
     Route: 060
  24. PLAQUENIL [HYDROXYCHLOROQUINE PHOSPHATE] [Concomitant]
     Active Substance: HYDROXYCHLOROQUINE DIPHOSPHATE
     Dosage: 200 MG, DAILY
  25. RANEXA [Concomitant]
     Active Substance: RANOLAZINE
     Dosage: 500 MG, 2X/DAY (1 TABLET ER 12HR TWICE DAILY)
  26. XANAX [Concomitant]
     Active Substance: ALPRAZOLAM
     Dosage: 0.25 MG, AS NEEDED (1 TABLET 3 TIMES A DAY PRN )
  27. CLONAZEPAM. [Concomitant]
     Active Substance: CLONAZEPAM
     Dosage: 1 MG, 1X/DAY (1 MG 1 TABLET AT BEDTIME )

REACTIONS (3)
  - Decreased activity [Unknown]
  - Weight increased [Unknown]
  - Product use in unapproved indication [Unknown]
